FAERS Safety Report 18239286 (Version 1)
Quarter: 2020Q3

REPORT INFORMATION
  Report Type: Other
  Country: SE (occurrence: SE)
  Receive Date: 20200907
  Receipt Date: 20200907
  Transmission Date: 20201103
  Serious: Yes (Hospitalization, Other)
  Sender: FDA-Public Use
  Company Number: SE-DENTSPLY-2020SCDP000270

PATIENT
  Age: 37 Year
  Sex: Male

DRUGS (5)
  1. DENTAN [Concomitant]
     Active Substance: SODIUM FLUORIDE
     Indication: PRODUCT USED FOR UNKNOWN INDICATION
     Dosage: DENTAN 0.2% MOUTHWASH
     Dates: start: 20200409, end: 20200811
  2. ZYPADHERA [Suspect]
     Active Substance: OLANZAPINE PAMOATE
     Indication: SCHIZOPHRENIA
     Dosage: 300 MILLIGRAM, DEPOT INJECTION
     Route: 030
     Dates: start: 20190521, end: 20190916
  3. XYLOCAINE WITH ADRENALINE (EPINEPHRINE) [Suspect]
     Active Substance: EPINEPHRINE BITARTRATE\LIDOCAINE HYDROCHLORIDE
     Indication: ANALGESIC THERAPY
     Dosage: 1 TOTAL, XYLOCAIN DENTAL ADRENALIN, INJECTIONFLUID SOLUTION
     Dates: start: 20200803, end: 20200803
  4. LIDOCAINE. [Concomitant]
     Active Substance: LIDOCAINE
     Indication: PRODUCT USED FOR UNKNOWN INDICATION
     Dosage: 1 TOTAL
     Dates: start: 20200803, end: 20200803
  5. ZYPADHERA [Suspect]
     Active Substance: OLANZAPINE PAMOATE
     Dosage: 405 MILLIGRAM 1 PC EVERY THREE WEEKS, DEPOT INJECTION
     Route: 030
     Dates: start: 20190917, end: 20200805

REACTIONS (1)
  - Post-injection delirium sedation syndrome [Recovered/Resolved]

NARRATIVE: CASE EVENT DATE: 20200804
